FAERS Safety Report 14109233 (Version 1)
Quarter: 2017Q4

REPORT INFORMATION
  Report Type: Spontaneous
  Country: BR (occurrence: BR)
  Receive Date: 20171019
  Receipt Date: 20171019
  Transmission Date: 20180321
  Serious: Yes (Hospitalization, Other)
  Sender: FDA-Public Use
  Company Number: BR-BAYER-2017-194898

PATIENT
  Age: 37 Year
  Sex: Female

DRUGS (1)
  1. MIRENA [Suspect]
     Active Substance: LEVONORGESTREL
     Indication: CONTRACEPTION
     Dosage: 20 MCG/24HR, CONT
     Route: 015
     Dates: start: 201707, end: 20171009

REACTIONS (7)
  - Vomiting [None]
  - Hepatomegaly [None]
  - Abdominal symptom [None]
  - Abdominal pain [None]
  - Hepatic lesion [None]
  - Nausea [None]
  - Decreased appetite [None]
